FAERS Safety Report 20637866 (Version 1)
Quarter: 2022Q1

REPORT INFORMATION
  Report Type: Report from Study
  Country: CL (occurrence: None)
  Receive Date: 20220325
  Receipt Date: 20220325
  Transmission Date: 20220424
  Serious: Yes (Other)
  Sender: FDA-Public Use
  Company Number: 2022A121761

PATIENT
  Age: 24381 Day
  Sex: Female
  Weight: 65 kg

DRUGS (1)
  1. XIGDUO XR [Suspect]
     Active Substance: DAPAGLIFLOZIN PROPANEDIOL\METFORMIN HYDROCHLORIDE
     Indication: Type 2 diabetes mellitus
     Dosage: 5/1000, EVERY 12 HOURS
     Route: 048
     Dates: start: 20211001, end: 20220202

REACTIONS (3)
  - Transaminases increased [Recovered/Resolved]
  - Tremor [Unknown]
  - Palpitations [Unknown]

NARRATIVE: CASE EVENT DATE: 20220101
